FAERS Safety Report 11898296 (Version 1)
Quarter: 2016Q1

REPORT INFORMATION
  Report Type: Spontaneous
  Country: HR (occurrence: HR)
  Receive Date: 20160108
  Receipt Date: 20160108
  Transmission Date: 20160526
  Serious: Yes (Life-Threatening)
  Sender: FDA-Public Use
  Company Number: HR-TEVA-623020ACC

PATIENT
  Age: 68 Year
  Sex: Female
  Weight: 67 kg

DRUGS (3)
  1. CARBOPLATIN PLIVA [Suspect]
     Active Substance: CARBOPLATIN
     Indication: OVARIAN CANCER
     Dosage: 300 MILLIGRAM DAILY;
     Route: 041
     Dates: start: 20151217, end: 20151227
  2. SYNOPEN [Concomitant]
     Indication: PREMEDICATION
  3. DEXAMETHASON [Concomitant]
     Active Substance: DEXAMETHASONE
     Indication: PREMEDICATION

REACTIONS (5)
  - Rash macular [Recovered/Resolved]
  - Chest discomfort [Recovered/Resolved]
  - Hypersensitivity [Recovered/Resolved]
  - Dyspnoea [Recovered/Resolved]
  - Erythema [Recovered/Resolved]

NARRATIVE: CASE EVENT DATE: 20151217
